FAERS Safety Report 24060450 (Version 2)
Quarter: 2024Q3

REPORT INFORMATION
  Report Type: Spontaneous
  Country: TR (occurrence: TR)
  Receive Date: 20240708
  Receipt Date: 20240710
  Transmission Date: 20241017
  Serious: Yes (Hospitalization, Other)
  Sender: MYLAN
  Company Number: TR-MYLANLABS-2024M1062708

PATIENT
  Age: 25 Year
  Sex: Male

DRUGS (1)
  1. LYRICA [Suspect]
     Active Substance: PREGABALIN
     Indication: Phantom limb syndrome
     Dosage: 3000 MILLIGRAM, QD
     Route: 065

REACTIONS (2)
  - Drug use disorder [Unknown]
  - Intentional product misuse [Unknown]
